FAERS Safety Report 20407489 (Version 1)
Quarter: 2022Q1

REPORT INFORMATION
  Report Type: Spontaneous
  Country: CN (occurrence: CN)
  Receive Date: 20220131
  Receipt Date: 20220131
  Transmission Date: 20220423
  Serious: Yes (Hospitalization, Disabling)
  Sender: FDA-Public Use
  Company Number: CN-PFIZER INC-202200123668

PATIENT
  Age: 50 Year
  Sex: Female
  Weight: 54.3 kg

DRUGS (2)
  1. CYTARABINE [Suspect]
     Active Substance: CYTARABINE
     Indication: Acute myeloid leukaemia
     Dosage: 4.5 G, 2X/DAY
     Route: 041
     Dates: start: 20211111, end: 20211114
  2. SODIUM CHLORIDE [Concomitant]
     Active Substance: SODIUM CHLORIDE
     Indication: Acute myeloid leukaemia
     Dosage: 500 ML, 2X/DAY
     Route: 041
     Dates: start: 20211111, end: 20211114

REACTIONS (8)
  - White blood cell count decreased [Recovering/Resolving]
  - Granulocyte count decreased [Recovering/Resolving]
  - Platelet count decreased [Recovering/Resolving]
  - Myelosuppression [Recovering/Resolving]
  - Nausea [Recovering/Resolving]
  - Vomiting [Recovering/Resolving]
  - Pruritus [Recovering/Resolving]
  - Infection [Recovered/Resolved]

NARRATIVE: CASE EVENT DATE: 20211114
